FAERS Safety Report 7235402-1 (Version None)
Quarter: 2011Q1

REPORT INFORMATION
  Report Type: 
  Country: None (occurrence: None)
  Receive Date: 20110120
  Receipt Date: 20110113
  Transmission Date: 20110831
  Serious: Yes (Other)
  Sender: FDA-Public Use
  Company Number: GB-JNJFOC-20110104441

PATIENT
  Sex: Female

DRUGS (1)
  1. RISPERDAL CONSTA [Suspect]
     Indication: PRODUCT USED FOR UNKNOWN INDICATION
     Dosage: RECEIVED FIFTH INJECTION ON 12-JAN-2011
     Route: 030

REACTIONS (8)
  - COORDINATION ABNORMAL [None]
  - LACTIC ACIDOSIS [None]
  - NERVOUS SYSTEM DISORDER [None]
  - FEELING HOT [None]
  - DEPRESSION [None]
  - METABOLIC ACIDOSIS [None]
  - INSOMNIA [None]
  - DYSARTHRIA [None]
